FAERS Safety Report 8932134 (Version 1)
Quarter: 2012Q4

REPORT INFORMATION
  Report Type: 
  Country: JP (occurrence: JP)
  Receive Date: 20121128
  Receipt Date: 20121128
  Transmission Date: 20130627
  Serious: Yes (Other)
  Sender: FDA-Public Use
  Company Number: JP-PFIZER INC-2012292796

PATIENT
  Age: 67 Year
  Sex: Male

DRUGS (9)
  1. METHYLPREDNISOLONE SODIUM SUCCINATE [Suspect]
     Indication: ANTINEUTROPHIL CYTOPLASMIC ANTIBODY POSITIVE
     Dosage: 500 mg daily
     Route: 042
     Dates: start: 200804, end: 200804
  2. METHYLPREDNISOLONE SODIUM SUCCINATE [Suspect]
     Indication: VASCULITIS
  3. PREDNISOLONE [Suspect]
     Indication: ANTINEUTROPHIL CYTOPLASMIC ANTIBODY POSITIVE
     Dosage: 40 mg/day (0.7 mg/kg)
     Route: 048
  4. PREDNISOLONE [Suspect]
     Indication: VASCULITIS
     Dosage: 40 mg/day (0.8 mg/kg)
     Route: 048
     Dates: start: 200804
  5. PREDNISOLONE [Suspect]
     Dosage: 3 mg/day
     Route: 048
  6. PREDNISOLONE [Suspect]
     Dosage: 7.5 mg/day
     Route: 048
  7. SMX TMP [Concomitant]
     Indication: ANTIFUNGAL PROPHYLAXIS
     Dosage: 160 mg of trimethoprim and 800 mg of sulfamethoxazole/week
     Route: 048
  8. SMX TMP [Concomitant]
     Dosage: 160 mg of trimethoprim and 800 mg of sulfamethoxazole twice a daily
     Route: 048
  9. AMPHOTERICIN B [Concomitant]
     Indication: ANTIFUNGAL PROPHYLAXIS
     Dosage: 100 mg/mL, 20 x dilution
     Route: 048

REACTIONS (2)
  - Nocardiosis [Recovering/Resolving]
  - Meningitis cryptococcal [Recovered/Resolved]
